FAERS Safety Report 6119310-5 (Version None)
Quarter: 2009Q1

REPORT INFORMATION
  Report Type: 
  Country: None (occurrence: None)
  Receive Date: 20090316
  Receipt Date: 20090312
  Transmission Date: 20090719
  Serious: Yes (Death)
  Sender: FDA-Public Use
  Company Number: PHHY2009BR09288

PATIENT
  Age: 86 Year
  Sex: Female

DRUGS (1)
  1. DIOVAN AMLO FIX [Suspect]

REACTIONS (1)
  - DEATH [None]
